FAERS Safety Report 4979913-8 (Version None)
Quarter: 2006Q2

REPORT INFORMATION
  Report Type: 
  Country: None (occurrence: None)
  Receive Date: 20060421
  Receipt Date: 20051115
  Transmission Date: 20061013
  Serious: Yes (Hospitalization, Disabling, Other)
  Sender: FDA-Public Use
  Company Number: US-MERCK-0511USA02501

PATIENT
  Age: 39 Year
  Sex: Female
  Weight: 114 kg

DRUGS (21)
  1. VIOXX [Suspect]
     Indication: ARTHRITIS
     Route: 048
     Dates: start: 20020101, end: 20040101
  2. VIOXX [Suspect]
     Route: 065
     Dates: start: 20010101, end: 20040101
  3. VIOXX [Suspect]
     Indication: ARTHRALGIA
     Route: 048
     Dates: start: 20020101, end: 20040101
  4. VIOXX [Suspect]
     Route: 065
     Dates: start: 20010101, end: 20040101
  5. MONOPRIL [Concomitant]
     Route: 048
     Dates: start: 20020101, end: 20040101
  6. NORVASC [Concomitant]
     Indication: HYPERTENSION
     Route: 065
     Dates: start: 20020101, end: 20040101
  7. HYDROCHLOROTHIAZIDE [Concomitant]
     Indication: HYPERTENSION
     Route: 065
     Dates: start: 20000101
  8. HYDROCHLOROTHIAZIDE [Concomitant]
     Indication: OEDEMA
     Route: 065
     Dates: start: 20000101
  9. PLAVIX [Concomitant]
     Route: 065
     Dates: start: 19950101
  10. ZOCOR [Concomitant]
     Route: 065
     Dates: start: 20021001, end: 20031001
  11. IBUPROFEN [Concomitant]
     Route: 065
     Dates: start: 20000101
  12. ACETAMINOPHEN AND HYDROCODONE BITARTRATE [Concomitant]
     Indication: RHEUMATOID ARTHRITIS
     Route: 065
  13. FLONASE [Concomitant]
     Indication: ASTHMA
     Route: 065
  14. ZITHROMAX [Concomitant]
     Route: 065
  15. ALLEGRA [Concomitant]
     Route: 065
  16. BIAXIN [Concomitant]
     Route: 065
  17. KEFLEX [Concomitant]
     Route: 065
  18. AUGMENTIN '125' [Concomitant]
     Route: 065
  19. DIFLUCAN [Concomitant]
     Route: 065
  20. ARISTOCORT [Concomitant]
     Route: 065
  21. BACTRIM [Concomitant]
     Route: 065

REACTIONS (16)
  - BLOOD CHOLESTEROL INCREASED [None]
  - CARDIAC FAILURE CONGESTIVE [None]
  - CEREBROVASCULAR ACCIDENT [None]
  - CORONARY ARTERY DISEASE [None]
  - DEPRESSION [None]
  - DIABETES MELLITUS [None]
  - DYSPNOEA [None]
  - HYPERHIDROSIS [None]
  - HYPERTENSION [None]
  - MIGRAINE [None]
  - MYOCARDIAL INFARCTION [None]
  - PHARYNGEAL OEDEMA [None]
  - PULMONARY EMBOLISM [None]
  - SLEEP APNOEA SYNDROME [None]
  - SWELLING FACE [None]
  - URTICARIA [None]
